FAERS Safety Report 8356477-2 (Version None)
Quarter: 2012Q2

REPORT INFORMATION
  Report Type: 
  Country: None (occurrence: None)
  Receive Date: 20120514
  Receipt Date: 20120510
  Transmission Date: 20120825
  Serious: No
  Sender: FDA-Public Use
  Company Number: US-BAYER-2012-046319

PATIENT
  Age: 76 Year
  Sex: Female

DRUGS (5)
  1. NEXIUM [Concomitant]
  2. CLIMARA [Suspect]
     Indication: HORMONE REPLACEMENT THERAPY
     Dosage: 0.01 MG, UNK
     Route: 062
     Dates: start: 20120401
  3. REGLAN [Concomitant]
  4. XANAX [Concomitant]
  5. OXYCODONE HCL [Concomitant]

REACTIONS (1)
  - PRURITUS [None]
